FAERS Safety Report 25010316 (Version 2)
Quarter: 2025Q2

REPORT INFORMATION
  Report Type: Spontaneous
  Country: PT (occurrence: PT)
  Receive Date: 20250225
  Receipt Date: 20250527
  Transmission Date: 20250716
  Serious: Yes (Other)
  Sender: SANOFI AVENTIS
  Company Number: None

PATIENT
  Age: 70 Year
  Sex: Male
  Weight: 73 kg

DRUGS (3)
  1. OXALIPLATIN [Suspect]
     Active Substance: OXALIPLATIN
     Indication: Gastric cancer
     Dosage: 152 MG, QOW (EVERY 14 DAYS (FOLFOX))
     Route: 042
     Dates: start: 20250205, end: 20250205
  2. DOCETAXEL [Suspect]
     Active Substance: DOCETAXEL
     Indication: Gastric cancer
     Route: 042
  3. FLUOROURACIL [Concomitant]
     Active Substance: FLUOROURACIL
     Indication: Gastric cancer
     Route: 042

REACTIONS (4)
  - Hyperhidrosis [Recovered/Resolved]
  - Infusion related hypersensitivity reaction [Recovered/Resolved]
  - Back pain [Recovered/Resolved]
  - Dysphonia [Recovered/Resolved]

NARRATIVE: CASE EVENT DATE: 20250205
